FAERS Safety Report 5342276-2 (Version None)
Quarter: 2007Q2

REPORT INFORMATION
  Report Type: 
  Country: None (occurrence: None)
  Receive Date: 20070416
  Receipt Date: 20070308
  Transmission Date: 20071010
  Serious: No
  Sender: FDA-Public Use
  Company Number: 2007SP000840

PATIENT
  Age: 51 Year
  Sex: Female
  Weight: 61.2356 kg

DRUGS (3)
  1. LUNESTA [Suspect]
     Indication: INSOMNIA
     Dosage: SEE IMAGE
     Route: 048
     Dates: start: 20050101
  2. LUNESTA [Suspect]
     Indication: INSOMNIA
     Dosage: SEE IMAGE
     Route: 048
     Dates: start: 20070201
  3. ATENOLOL [Concomitant]

REACTIONS (6)
  - AMNESIA [None]
  - DRUG EFFECT DECREASED [None]
  - HEADACHE [None]
  - INSOMNIA [None]
  - OXYGEN SATURATION DECREASED [None]
  - SOMNOLENCE [None]
